FAERS Safety Report 23450937 (Version 4)
Quarter: 2024Q2

REPORT INFORMATION
  Report Type: Spontaneous
  Country: US (occurrence: US)
  Receive Date: 20240129
  Receipt Date: 20240513
  Transmission Date: 20240716
  Serious: No
  Sender: FDA-Public Use
  Company Number: US-PFIZER INC-202400012794

PATIENT
  Age: 56 Year
  Sex: Female
  Weight: 65.77 kg

DRUGS (2)
  1. GENOTROPIN [Suspect]
     Active Substance: SOMATROPIN
     Indication: Hypopituitarism
     Dosage: 0.3 MG, DAILY
     Route: 058
     Dates: start: 202312
  2. GENOTROPIN [Suspect]
     Active Substance: SOMATROPIN
     Dosage: EVERY OTHER DAY

REACTIONS (5)
  - Poor quality device used [Unknown]
  - Product dose omission issue [Unknown]
  - Intentional product misuse [Unknown]
  - Device breakage [Unknown]
  - Device leakage [Unknown]
